FAERS Safety Report 12155752 (Version 1)
Quarter: 2016Q1

REPORT INFORMATION
  Report Type: Spontaneous
  Country: US (occurrence: US)
  Receive Date: 20160307
  Receipt Date: 20160307
  Transmission Date: 20160526
  Serious: Yes (Hospitalization, Other)
  Sender: FDA-Public Use
  Company Number: US-BAYER-2016-039248

PATIENT
  Age: 23 Year
  Sex: Female

DRUGS (1)
  1. SKYLA [Suspect]
     Active Substance: LEVONORGESTREL
     Indication: CONTRACEPTION
     Dosage: 14 MCG/24HR, CONT
     Route: 015
     Dates: start: 201504, end: 20160218

REACTIONS (5)
  - Intra-abdominal haemorrhage [None]
  - Ectopic pregnancy with contraceptive device [None]
  - Genital haemorrhage [None]
  - Pain [None]
  - Drug ineffective [None]

NARRATIVE: CASE EVENT DATE: 20160219
